FAERS Safety Report 6005978-0 (Version None)
Quarter: 2008Q4

REPORT INFORMATION
  Report Type: 
  Country: None (occurrence: None)
  Receive Date: 20081217
  Receipt Date: 20081203
  Transmission Date: 20090506
  Serious: Yes (Other)
  Sender: FDA-Public Use
  Company Number: GB-ELI_LILLY_AND_COMPANY-GB200809005243

PATIENT
  Sex: Male
  Weight: 93 kg

DRUGS (4)
  1. BYETTA [Suspect]
     Dosage: 5 UG, UNKNOWN
     Route: 058
     Dates: start: 20080118, end: 20080201
  2. BYETTA [Suspect]
     Dosage: 10 UG, UNKNOWN
     Route: 058
     Dates: start: 20080201
  3. METFORMIN HCL [Concomitant]
     Dosage: 1 G, 2/D
     Route: 048
  4. GLICLAZIDE [Concomitant]
     Dosage: 160 MG, 2/D
     Route: 048

REACTIONS (5)
  - NASOPHARYNGITIS [None]
  - RETINAL HAEMORRHAGE [None]
  - RETINOPATHY PROLIFERATIVE [None]
  - VITREOUS HAEMORRHAGE [None]
  - WEIGHT DECREASED [None]
